FAERS Safety Report 7645229-4 (Version None)
Quarter: 2011Q3

REPORT INFORMATION
  Report Type: 
  Country: None (occurrence: None)
  Receive Date: 20110729
  Receipt Date: 20110725
  Transmission Date: 20111222
  Serious: Yes (Hospitalization)
  Sender: FDA-Public Use
  Company Number: US-MERCK-1107USA03032

PATIENT
  Age: 68 Year
  Sex: Male

DRUGS (3)
  1. DECADRON [Suspect]
     Indication: MULTIPLE MYELOMA
     Dosage: L, 8, 15 AND 22
     Route: 048
     Dates: start: 20110309, end: 20110325
  2. REVLIMID [Suspect]
     Indication: MULTIPLE MYELOMA
     Route: 048
     Dates: start: 20110309, end: 20110331
  3. REVLIMID [Suspect]
     Route: 048
     Dates: start: 20110414

REACTIONS (3)
  - BONE PAIN [None]
  - PSYCHOTIC DISORDER [None]
  - ASTHENIA [None]
